FAERS Safety Report 7525530-5 (Version None)
Quarter: 2011Q2

REPORT INFORMATION
  Report Type: 
  Country: None (occurrence: None)
  Receive Date: 20110602
  Receipt Date: 20110602
  Transmission Date: 20111010
  Serious: Yes (Disabling, Other)
  Sender: FDA-Public Use
  Company Number: None

PATIENT
  Age: 76 Year
  Sex: Male
  Weight: 72.5755 kg

DRUGS (3)
  1. LEXAPRO [Concomitant]
  2. ABILIFY [Suspect]
     Indication: DEPRESSION
     Dosage: 7.5 1 PER DAY ORAL
     Route: 048
     Dates: start: 20110401
  3. ZYPREXA [Concomitant]

REACTIONS (4)
  - GAIT DISTURBANCE [None]
  - PARKINSONISM [None]
  - ASTHENIA [None]
  - DYSPHONIA [None]
